FAERS Safety Report 8817358 (Version 2)
Quarter: 2012Q4

REPORT INFORMATION
  Report Type: 
  Country: US (occurrence: US)
  Receive Date: 20121001
  Receipt Date: 20121010
  Transmission Date: 20130627
  Serious: Yes (Hospitalization)
  Sender: FDA-Public Use
  Company Number: US-ACTELION-A-US2012-71251

PATIENT
  Age: 40 Year
  Sex: Male

DRUGS (4)
  1. VELETRI [Suspect]
     Indication: PULMONARY ARTERIAL HYPERTENSION
     Dosage: 50 ng/kg, per min
     Route: 042
     Dates: start: 20110523
  2. SILDENAFIL [Concomitant]
  3. LETAIRIS [Concomitant]
  4. ASPIRIN [Concomitant]

REACTIONS (4)
  - Viral infection [Recovering/Resolving]
  - Device related infection [Unknown]
  - Pyrexia [Recovering/Resolving]
  - Chills [Recovering/Resolving]
